FAERS Safety Report 4397837-4 (Version None)
Quarter: 2004Q2

REPORT INFORMATION
  Report Type: 
  Country: None (occurrence: None)
  Receive Date: 20040621
  Receipt Date: 20040331
  Transmission Date: 20050107
  Serious: Yes (Death, Hospitalization)
  Sender: FDA-Public Use
  Company Number: USA-2004-0014241

PATIENT
  Age: 8 Year
  Sex: Female

DRUGS (4)
  1. OXYCONTIN [Suspect]
     Dosage: MG
  2. MORPHINE SULFATE [Suspect]
  3. PERCOCET [Suspect]
  4. VICODIN [Suspect]

REACTIONS (6)
  - COMA [None]
  - DYSPNOEA [None]
  - MULTIPLE DRUG OVERDOSE [None]
  - RESPIRATORY ARREST [None]
  - VICTIM OF HOMICIDE [None]
  - VOMITING [None]
